FAERS Safety Report 11499254 (Version 6)
Quarter: 2015Q4

REPORT INFORMATION
  Report Type: Spontaneous
  Country: US (occurrence: US)
  Receive Date: 20150913
  Receipt Date: 20151028
  Transmission Date: 20160304
  Serious: Yes (Other)
  Sender: FDA-Public Use
  Company Number: US-AMGEN-USASP2015093479

PATIENT
  Age: 63 Year
  Sex: Female

DRUGS (4)
  1. IBUPROFEN. [Concomitant]
     Active Substance: IBUPROFEN
     Dosage: UNK
  2. NAPROXEN. [Concomitant]
     Active Substance: NAPROXEN
     Dosage: UNK
  3. ENBREL [Suspect]
     Active Substance: ETANERCEPT
     Indication: RHEUMATOID ARTHRITIS
     Dosage: UNK
     Route: 065
  4. ENBREL [Suspect]
     Active Substance: ETANERCEPT
     Indication: PSORIATIC ARTHROPATHY
     Dosage: 50 MG, WEEKLY
     Route: 065
     Dates: start: 2012

REACTIONS (10)
  - Rheumatoid arthritis [Unknown]
  - Visual impairment [Unknown]
  - Cardiac disorder [Unknown]
  - Malaise [Unknown]
  - Electrocardiogram abnormal [Unknown]
  - Blood pressure abnormal [Unknown]
  - Injection site pain [Unknown]
  - Device issue [Unknown]
  - Arteritis [Unknown]
  - Injection site mass [Unknown]
